FAERS Safety Report 6583663-4 (Version None)
Quarter: 2010Q2

REPORT INFORMATION
  Report Type: 
  Country: None (occurrence: None)
  Receive Date: 20100213
  Receipt Date: 20100213
  Transmission Date: 20101027
  Serious: No
  Sender: FDA-Public Use
  Company Number: None

PATIENT
  Age: 21 Year
  Sex: Female
  Weight: 61.2356 kg

DRUGS (2)
  1. METHYLPREDNISOLONE [Suspect]
     Indication: SINUSITIS
     Dosage: 6 TIMES 4 MG ON 1ST DAY DOSAGE DECREASING W/DAYS  PO
     Route: 048
     Dates: start: 20100129, end: 20100203
  2. AMOXICILLIN [Concomitant]

REACTIONS (5)
  - ARTHRALGIA [None]
  - BONE PAIN [None]
  - HUNGER [None]
  - MYALGIA [None]
  - THIRST [None]
